FAERS Safety Report 25050911 (Version 1)
Quarter: 2025Q1

REPORT INFORMATION
  Report Type: Spontaneous
  Country: US (occurrence: US)
  Receive Date: 20250307
  Receipt Date: 20250307
  Transmission Date: 20250409
  Serious: No
  Sender: MERCK SHARP & DOHME LLC
  Company Number: US-009507513-2255571

PATIENT
  Sex: Male
  Weight: 131 kg

DRUGS (19)
  1. SOTATERCEPT [Suspect]
     Active Substance: SOTATERCEPT
     Indication: Product used for unknown indication
  2. SOTATERCEPT [Suspect]
     Active Substance: SOTATERCEPT
  3. SOTATERCEPT [Suspect]
     Active Substance: SOTATERCEPT
  4. SOTATERCEPT [Suspect]
     Active Substance: SOTATERCEPT
  5. ALBUTEROL SULFATE [Concomitant]
     Active Substance: ALBUTEROL SULFATE
  6. HYDROXYZINE HYDROCHLORIDE [Concomitant]
     Active Substance: HYDROXYZINE HYDROCHLORIDE
  7. EPLERENONE [Concomitant]
     Active Substance: EPLERENONE
  8. TORSEMIDE [Concomitant]
     Active Substance: TORSEMIDE
  9. CLONAZEPAM [Concomitant]
     Active Substance: CLONAZEPAM
  10. ALLOPURINOL [Concomitant]
     Active Substance: ALLOPURINOL
  11. GABAPENTIN [Concomitant]
     Active Substance: GABAPENTIN
  12. METOLAZONE [Concomitant]
     Active Substance: METOLAZONE
  13. TASIGNA [Concomitant]
     Active Substance: NILOTINIB
  14. TRAMADOL HCL [Concomitant]
     Active Substance: TRAMADOL HYDROCHLORIDE
  15. ASPIRIN [Concomitant]
     Active Substance: ASPIRIN
  16. ACETAMINOPHEN [Concomitant]
     Active Substance: ACETAMINOPHEN
  17. LOPERAMIDE [Concomitant]
     Active Substance: LOPERAMIDE
  18. REMODULIN [Suspect]
     Active Substance: TREPROSTINIL
     Indication: Pulmonary arterial hypertension
     Route: 058
     Dates: start: 20220928
  19. POTASSIUM CHLORIDE [Concomitant]
     Active Substance: POTASSIUM CHLORIDE

REACTIONS (3)
  - Platelet count decreased [Unknown]
  - Product dose omission issue [Unknown]
  - Product distribution issue [Unknown]
